FAERS Safety Report 4932894-5 (Version None)
Quarter: 2006Q1

REPORT INFORMATION
  Report Type: 
  Country: None (occurrence: None)
  Receive Date: 20060306
  Receipt Date: 20060221
  Transmission Date: 20060701
  Serious: No
  Sender: FDA-Public Use
  Company Number: GB-JNJFOC-20060203690

PATIENT
  Sex: Male
  Weight: 52 kg

DRUGS (1)
  1. CONCERTA [Suspect]
     Route: 048

REACTIONS (3)
  - INSOMNIA [None]
  - TACHYCARDIA [None]
  - THERAPEUTIC RESPONSE DELAYED [None]
